FAERS Safety Report 19853724 (Version 13)
Quarter: 2023Q2

REPORT INFORMATION
  Report Type: Spontaneous
  Country: CA (occurrence: CA)
  Receive Date: 20210919
  Receipt Date: 20230425
  Transmission Date: 20230722
  Serious: Yes (Hospitalization, Other)
  Sender: FDA-Public Use
  Company Number: CA-CELLTRION INC.-2021CA012614

PATIENT

DRUGS (14)
  1. INFLECTRA [Suspect]
     Active Substance: INFLIXIMAB-DYYB
     Indication: Colitis ulcerative
     Dosage: 5MG/KG WEEKS 0, 2,6 THEN  EVERY 8 WEEKS
     Route: 042
     Dates: start: 20210729, end: 20210909
  2. INFLECTRA [Suspect]
     Active Substance: INFLIXIMAB-DYYB
     Dosage: 420 MG
     Route: 042
     Dates: start: 20210812
  3. INFLECTRA [Suspect]
     Active Substance: INFLIXIMAB-DYYB
     Dosage: 5MG/KG WEEKS 0, 2,6 THEN  EVERY 8 WEEKS
     Route: 042
     Dates: start: 20210909
  4. INFLECTRA [Suspect]
     Active Substance: INFLIXIMAB-DYYB
     Dosage: 5MG/KG, EVERY 8 WEEKS
     Route: 042
     Dates: start: 20211104, end: 20220105
  5. INFLECTRA [Suspect]
     Active Substance: INFLIXIMAB-DYYB
     Dosage: 5MG/KG WEEKS 0, 2,6 THEN  EVERY 8 WEEKS
     Route: 042
     Dates: start: 20211108
  6. INFLECTRA [Suspect]
     Active Substance: INFLIXIMAB-DYYB
     Dosage: 5MG/KG WEEKS 0, 2,6 THEN  EVERY 8 WEEKS
     Route: 042
     Dates: start: 20220105
  7. INFLECTRA [Suspect]
     Active Substance: INFLIXIMAB-DYYB
     Dosage: 5MG/KG EVERY 6 WEEKS
     Route: 042
     Dates: start: 20220217
  8. INFLECTRA [Suspect]
     Active Substance: INFLIXIMAB-DYYB
     Dosage: 5MG/KG EVERY 6 WEEKS
     Route: 042
     Dates: start: 20220217, end: 20221208
  9. INFLECTRA [Suspect]
     Active Substance: INFLIXIMAB-DYYB
     Dosage: 5MG/KG EVERY 6 WEEKS
     Route: 042
     Dates: start: 20220331
  10. INFLECTRA [Suspect]
     Active Substance: INFLIXIMAB-DYYB
     Dosage: 5MG/KG EVERY 6 WEEKS
     Route: 042
     Dates: start: 20220915
  11. INFLECTRA [Suspect]
     Active Substance: INFLIXIMAB-DYYB
     Dosage: 5MG/KG EVERY 6 WEEKS
     Route: 042
     Dates: start: 20221027
  12. INFLECTRA [Suspect]
     Active Substance: INFLIXIMAB-DYYB
     Dosage: 5MG/KG EVERY 6 WEEKS
     Route: 042
     Dates: start: 20221208
  13. INFLECTRA [Suspect]
     Active Substance: INFLIXIMAB-DYYB
     Dosage: 10 MG/KG, EVERY 6 WEEKS (884 MG)
     Route: 042
     Dates: start: 20230119
  14. INFLECTRA [Suspect]
     Active Substance: INFLIXIMAB-DYYB
     Dosage: 10 MG/KG, EVERY 6 WEEKS
     Route: 042
     Dates: start: 20230412

REACTIONS (21)
  - Back pain [Recovered/Resolved]
  - Ovarian cyst [Not Recovered/Not Resolved]
  - Drug level below therapeutic [Not Recovered/Not Resolved]
  - Condition aggravated [Recovering/Resolving]
  - Feeling cold [Unknown]
  - Nausea [Recovering/Resolving]
  - Vomiting [Not Recovered/Not Resolved]
  - Constipation [Not Recovered/Not Resolved]
  - Abdominal pain [Not Recovered/Not Resolved]
  - Abdominal rigidity [Not Recovered/Not Resolved]
  - Depression [Unknown]
  - Stress [Not Recovered/Not Resolved]
  - Abdominal tenderness [Not Recovered/Not Resolved]
  - Abdominal discomfort [Not Recovered/Not Resolved]
  - Pain [Unknown]
  - Impaired work ability [Unknown]
  - Incorrect dose administered [Unknown]
  - Off label use [Unknown]
  - Off label use [Unknown]
  - Intentional product use issue [Unknown]
  - Hepatic enzyme increased [Recovering/Resolving]

NARRATIVE: CASE EVENT DATE: 20210701
